FAERS Safety Report 8426349-3 (Version None)
Quarter: 2012Q2

REPORT INFORMATION
  Report Type: 
  Country: None (occurrence: None)
  Receive Date: 20120323
  Receipt Date: 20110506
  Transmission Date: 20120825
  Serious: Yes (Other)
  Sender: FDA-Public Use
  Company Number: 163-21880-11043296

PATIENT
  Age: 63 Year
  Sex: Female

DRUGS (11)
  1. METROGEL [Concomitant]
  2. FLOVENT [Concomitant]
  3. CALCIUM D (OS-CAL) [Concomitant]
  4. TAMOXIFEN CITRATE [Concomitant]
  5. AMITRIPTYLINE HCL [Concomitant]
  6. DURAGESIC-100 [Concomitant]
  7. MESTINON [Concomitant]
  8. REVLIMID [Suspect]
     Indication: MULTIPLE MYELOMA
     Dosage: 25 MG, DAILY X 21 DAYS, PO ; 12.5 MG, 1 IN 2 D, PO
     Route: 048
     Dates: start: 20110426, end: 20110101
  9. REVLIMID [Suspect]
     Indication: MULTIPLE MYELOMA
     Dosage: 25 MG, DAILY X 21 DAYS, PO ; 12.5 MG, 1 IN 2 D, PO
     Route: 048
     Dates: start: 20110418, end: 20110401
  10. FERROUS SULFATE TAB [Concomitant]
  11. METOCLOPRAMIDE [Concomitant]

REACTIONS (1)
  - RENAL IMPAIRMENT [None]
